FAERS Safety Report 10222739 (Version 1)
Quarter: 2014Q2

REPORT INFORMATION
  Report Type: Spontaneous
  Country: RU (occurrence: RU)
  Receive Date: 20140606
  Receipt Date: 20140606
  Transmission Date: 20141212
  Serious: Yes (Hospitalization)
  Sender: FDA-Public Use
  Company Number: RU-ASTRAZENECA-2014SE38753

PATIENT
  Age: 20182 Day
  Sex: Female
  Weight: 60 kg

DRUGS (4)
  1. CRESTOR [Suspect]
     Route: 048
     Dates: start: 20140425
  2. METHOTREXATE [Concomitant]
  3. AZATHIOPRINE [Concomitant]
  4. ACTEMRA [Concomitant]
     Indication: RHEUMATOID ARTHRITIS
     Dosage: 9 INJECTIONS

REACTIONS (1)
  - Leukopenia [Unknown]
